FAERS Safety Report 9848752 (Version 3)
Quarter: 2014Q1

REPORT INFORMATION
  Report Type: Spontaneous
  Country: JP (occurrence: JP)
  Receive Date: 20140128
  Receipt Date: 20140211
  Transmission Date: 20141002
  Serious: Yes (Death)
  Sender: FDA-Public Use
  Company Number: JP-BAYER-2014-010455

PATIENT
  Age: 19 Year
  Sex: Female
  Weight: 68.93 kg

DRUGS (1)
  1. YAZ [Suspect]
     Indication: DYSMENORRHOEA
     Dosage: DAILY DOSE 1 DF
     Route: 048
     Dates: start: 201102, end: 201206

REACTIONS (1)
  - Death [Fatal]
